FAERS Safety Report 9235192 (Version 2)
Quarter: 2013Q2

REPORT INFORMATION
  Report Type: Spontaneous
  Country: CH (occurrence: CH)
  Receive Date: 20130417
  Receipt Date: 20130506
  Transmission Date: 20140414
  Serious: Yes (Hospitalization)
  Sender: FDA-Public Use
  Company Number: CH-AMGEN-CHESP2013025815

PATIENT
  Age: 39 Year
  Sex: Male
  Weight: 66 kg

DRUGS (3)
  1. NEUPOGEN [Suspect]
     Indication: PRODUCT USED FOR UNKNOWN INDICATION
     Dosage: 300 MUG, 1 PER 1 DAY(S)
     Route: 058
     Dates: start: 20130310, end: 20130314
  2. RITUXIMAB [Suspect]
     Dosage: UNK
     Route: 041
     Dates: start: 201207, end: 20121008
  3. EMTRICITABINE W/TENOFOVIR DISOPROXIL FUMARATE [Concomitant]
     Dosage: 1 DF, 1 PER1 DAY(S)
     Route: 048

REACTIONS (2)
  - Febrile neutropenia [Recovered/Resolved]
  - Bone pain [Recovering/Resolving]
